FAERS Safety Report 21375378 (Version 1)
Quarter: 2022Q3

REPORT INFORMATION
  Report Type: Report from Study
  Country: US (occurrence: US)
  Receive Date: 20220926
  Receipt Date: 20220926
  Transmission Date: 20221027
  Serious: Yes (Hospitalization, Other)
  Sender: FDA-Public Use
  Company Number: US-ABBVIE-22K-163-4532909-00

PATIENT
  Sex: Female
  Weight: 63.502 kg

DRUGS (13)
  1. HUMIRA [Suspect]
     Active Substance: ADALIMUMAB
     Indication: Psoriatic arthropathy
     Route: 058
     Dates: start: 2014
  2. HUMIRA [Suspect]
     Active Substance: ADALIMUMAB
     Indication: Psoriasis
  3. METFORMIN [Concomitant]
     Active Substance: METFORMIN HYDROCHLORIDE
     Indication: Diabetes mellitus
  4. TYLENOL [Concomitant]
     Active Substance: ACETAMINOPHEN
     Indication: Back pain
  5. CORTISONE [Concomitant]
     Active Substance: CORTISONE
     Indication: Arthralgia
  6. CELEBREX [Concomitant]
     Active Substance: CELECOXIB
     Indication: Arthralgia
  7. VITAMIN D3 [Concomitant]
     Active Substance: CHOLECALCIFEROL
     Indication: Immune system disorder
  8. ATORVASTATIN [Concomitant]
     Active Substance: ATORVASTATIN
     Indication: Blood cholesterol abnormal
  9. MODERNA COVID-19 VACCINE [Concomitant]
     Active Substance: ELASOMERAN
     Indication: COVID-19 immunisation
     Dosage: THIRD DOSE -  ONCE
     Route: 030
     Dates: start: 20211105, end: 20211105
  10. MODERNA COVID-19 VACCINE [Concomitant]
     Active Substance: ELASOMERAN
     Indication: COVID-19 immunisation
     Dosage: FIRST DOSE -  ONCE
     Route: 030
     Dates: start: 20210217, end: 20210217
  11. MODERNA COVID-19 VACCINE [Concomitant]
     Active Substance: ELASOMERAN
     Indication: COVID-19 immunisation
     Dosage: SECOND DOSE -  ONCE
     Route: 030
     Dates: start: 20210303, end: 20210303
  12. PHENTERMINE [Concomitant]
     Active Substance: PHENTERMINE
     Indication: Weight decreased
  13. SOLIFENACIN [Concomitant]
     Active Substance: SOLIFENACIN
     Indication: Urinary incontinence

REACTIONS (25)
  - Skin laceration [Recovering/Resolving]
  - Fall [Recovered/Resolved]
  - Skull fracture [Recovering/Resolving]
  - Joint range of motion decreased [Not Recovered/Not Resolved]
  - Joint injury [Unknown]
  - Eye contusion [Not Recovered/Not Resolved]
  - Spinal fracture [Unknown]
  - Painful respiration [Unknown]
  - Scratch [Not Recovered/Not Resolved]
  - Back pain [Unknown]
  - Contusion [Not Recovered/Not Resolved]
  - Arthralgia [Unknown]
  - Pain [Unknown]
  - Arthralgia [Not Recovered/Not Resolved]
  - Burning sensation [Unknown]
  - Gait disturbance [Not Recovered/Not Resolved]
  - Eye swelling [Not Recovered/Not Resolved]
  - Lumbar vertebral fracture [Not Recovered/Not Resolved]
  - Head injury [Unknown]
  - Swelling [Unknown]
  - Swelling face [Not Recovered/Not Resolved]
  - Back injury [Unknown]
  - Thoracic vertebral fracture [Not Recovered/Not Resolved]
  - Face injury [Unknown]
  - Pain [Not Recovered/Not Resolved]

NARRATIVE: CASE EVENT DATE: 20220101
